FAERS Safety Report 8422006-8 (Version None)
Quarter: 2012Q2

REPORT INFORMATION
  Report Type: 
  Country: None (occurrence: None)
  Receive Date: 20120323
  Receipt Date: 20110211
  Transmission Date: 20120825
  Serious: Yes (Hospitalization)
  Sender: FDA-Public Use
  Company Number: 163-21880-11021517

PATIENT
  Sex: Male

DRUGS (3)
  1. REVLIMID [Suspect]
     Indication: MULTIPLE MYELOMA
     Dosage: 25 MG, DAILY X 21 DAYS, PO
     Route: 048
     Dates: start: 20101208
  2. DEXAMETHASONE [Concomitant]
  3. PROCHLORPERAZINE MALEATE (PROCHLORPERAZINE MALEATE) [Concomitant]

REACTIONS (2)
  - FULL BLOOD COUNT DECREASED [None]
  - ASTHENIA [None]
